FAERS Safety Report 9293868 (Version 1)
Quarter: 2013Q1

REPORT INFORMATION
  Report Type: Spontaneous
  Country: US (occurrence: None)
  Receive Date: 20121217
  Receipt Date: 20121217
  Transmission Date: 20140127
  Serious: Yes (Hospitalization)
  Sender: FDA-Public Use
  Company Number: 1000037424

PATIENT
  Age: 72 Year
  Sex: Male

DRUGS (16)
  1. NAMENDA [Suspect]
     Indication: DEMENTIA
     Dosage: 20MG (10 MG, 2 IN 1 D), ORAL
     Route: 048
     Dates: start: 20120521
  2. ARICEPT(DONEPEZIL HYDROCHLORIDE) (DONEPEZIL HYDROCHLORIDE) [Concomitant]
  3. DIGOXIN(DIGOXIN)(DIGOXIN) [Concomitant]
  4. PLAVIX(CLOPIDOGREL BISULFATE)(CLOPIDOGREL BISULFATE) [Concomitant]
  5. NORVASC(AMLODIPINE BESILATE)(AMLODIPINE BESILATE) [Concomitant]
  6. METOPROLOL(METOPROLOL)(METOPROLOL) [Concomitant]
  7. LISINOPRIL(LISINOPRIL)(LISINOPRIL) [Concomitant]
  8. TRICOR(FENOFIBRATE)(FENOFIBRATE) [Concomitant]
  9. ZYPREXA(OLANZAPINE)(OLANZAPINE) [Concomitant]
  10. PRILOSEC(OMEPRAZOLE)(OMEPRAZOLE) [Concomitant]
  11. CITALOPRAM(CITALOPRAM HYDROBROMIDE)(CITALOPRAM HYDROBROMIDE) [Concomitant]
  12. AVODART(DUTASTERIDE)(DUTASTERIDE) [Concomitant]
  13. SIMVASTATIN(SIMVASTATIN)(SIMVASTATIN) [Concomitant]
  14. CLONAZEPAM(CLONAZEPAM)(CLONAZEPAM) [Concomitant]
  15. DEPAKOTE(VALPROATE SEMISODIUM)(VALPROATE SEMISODIUM) [Concomitant]
  16. TRAZODONE(TRAZODONE)(TRAZODONE) [Concomitant]

REACTIONS (3)
  - Urinary tract infection [None]
  - Hallucination [None]
  - Macular degeneration [None]
